FAERS Safety Report 20587671 (Version 1)
Quarter: 2022Q1

REPORT INFORMATION
  Report Type: Spontaneous
  Country: CN (occurrence: CN)
  Receive Date: 20220314
  Receipt Date: 20220314
  Transmission Date: 20220423
  Serious: Yes (Hospitalization, Other)
  Sender: FDA-Public Use
  Company Number: CN-SUN PHARMACEUTICAL INDUSTRIES LTD-2022R1-329106

PATIENT
  Age: 31 Year
  Sex: Female

DRUGS (10)
  1. HYDROCORTISONE [Suspect]
     Active Substance: HYDROCORTISONE
     Indication: Skin lesion
     Dosage: 200 MILLIGRAM, DAILY
     Route: 042
  2. PREDNISONE [Suspect]
     Active Substance: PREDNISONE
     Indication: Rash
     Dosage: 20 MILLIGRAM, DAILY
     Route: 048
  3. INSULIN NOS [Suspect]
     Active Substance: INSULIN NOS
     Indication: Blood glucose abnormal
     Dosage: UNK
     Route: 058
  4. METHYLPREDNISOLONE [Suspect]
     Active Substance: METHYLPREDNISOLONE
     Indication: Dermatitis allergic
     Dosage: UNK
     Route: 061
  5. MOMETASONE [Suspect]
     Active Substance: MOMETASONE
     Indication: Rash
     Dosage: 60 MILLIGRAM
     Route: 042
  6. MUPIROCIN [Suspect]
     Active Substance: MUPIROCIN
     Indication: Rash
     Dosage: UNK
     Route: 065
  7. RITODRINE [Suspect]
     Active Substance: RITODRINE
     Indication: Premature labour
     Dosage: UNK
     Route: 042
  8. CALAMINE [Suspect]
     Active Substance: CALAMINE\FERRIC OXIDE RED\ZINC OXIDE
     Indication: Dermatitis allergic
     Dosage: UNK
     Route: 061
  9. CALCIUM GLUCONATE [Suspect]
     Active Substance: CALCIUM GLUCONATE
     Indication: Rash
     Dosage: 10 MILLILITER, DAILY
     Route: 042
  10. INDOMETHACIN [Suspect]
     Active Substance: INDOMETHACIN
     Indication: Premature labour
     Dosage: UNK/ 6 TIMES
     Route: 054

REACTIONS (3)
  - Toxic epidermal necrolysis [Recovered/Resolved]
  - Exposure during pregnancy [Unknown]
  - Premature delivery [Unknown]
